FAERS Safety Report 12076704 (Version 2)
Quarter: 2016Q1

REPORT INFORMATION
  Report Type: Report from Study
  Country: ES (occurrence: ES)
  Receive Date: 20160215
  Receipt Date: 20160217
  Transmission Date: 20160526
  Serious: Yes (Death)
  Sender: FDA-Public Use
  Company Number: ES-009507513-1602ESP006188

PATIENT
  Age: 40 Year
  Sex: Female

DRUGS (1)
  1. PEMBROLIZUMAB. [Suspect]
     Active Substance: PEMBROLIZUMAB
     Indication: METASTATIC MALIGNANT MELANOMA
     Dosage: STRENGTH: 25 MG/ML, EVERY 21 DAYS
     Route: 042
     Dates: start: 20140915, end: 20150612

REACTIONS (1)
  - Malignant melanoma [Fatal]
